FAERS Safety Report 5625552-5 (Version None)
Quarter: 2008Q1

REPORT INFORMATION
  Report Type: 
  Country: None (occurrence: None)
  Receive Date: 20080211
  Receipt Date: 20080211
  Transmission Date: 20080703
  Serious: Yes (Life-Threatening, Other)
  Sender: FDA-Public Use
  Company Number: None

PATIENT
  Age: 48 Year
  Sex: Female
  Weight: 68.0396 kg

DRUGS (1)
  1. ANGELIQ [Suspect]
     Indication: HOT FLUSH
     Dosage: ONE PILL ONCE A DAY PO
     Route: 048
     Dates: start: 20071231, end: 20080205

REACTIONS (3)
  - ADNEXA UTERI PAIN [None]
  - METRORRHAGIA [None]
  - OVARIAN DISORDER [None]
